FAERS Safety Report 4438417-1 (Version None)
Quarter: 2004Q3

REPORT INFORMATION
  Report Type: 
  Country: None (occurrence: None)
  Receive Date: 20040827
  Receipt Date: 20040813
  Transmission Date: 20050211
  Serious: Yes (Hospitalization)
  Sender: FDA-Public Use
  Company Number: S04-UKI-03828-01

PATIENT
  Age: 81 Year
  Sex: Female

DRUGS (7)
  1. CIPRALEX (ESCITALOPRAM) [Suspect]
     Indication: DEPRESSION
     Dates: end: 20040719
  2. VENLAFAXINE HCL [Suspect]
     Indication: DEPRESSION
     Dosage: 37.5 MG QD PO
     Route: 048
     Dates: start: 20040719, end: 20040723
  3. SIMVASTATIN [Concomitant]
  4. ASPIRIN [Concomitant]
  5. CEPHALEXIN [Concomitant]
  6. IMDUR [Concomitant]
  7. TEOPTIC (CARTEOLOL HYDROCHLORIDE) [Concomitant]

REACTIONS (6)
  - CEREBRAL ATROPHY [None]
  - CIRCULATORY COLLAPSE [None]
  - CONVULSION [None]
  - DIZZINESS [None]
  - LACUNAR INFARCTION [None]
  - MYOCLONUS [None]
